FAERS Safety Report 14447783 (Version 1)
Quarter: 2018Q1

REPORT INFORMATION
  Report Type: Spontaneous
  Country: US (occurrence: US)
  Receive Date: 20180126
  Receipt Date: 20180126
  Transmission Date: 20180509
  Serious: Yes (Hospitalization, Other)
  Sender: FDA-Public Use
  Company Number: US-ABBVIE-17K-163-2074191-00

PATIENT
  Age: 22 Year

DRUGS (4)
  1. ENTYVIO [Suspect]
     Active Substance: VEDOLIZUMAB
     Indication: PRODUCT USED FOR UNKNOWN INDICATION
     Route: 065
  2. PREDNISONE. [Suspect]
     Active Substance: PREDNISONE
     Indication: PRODUCT USED FOR UNKNOWN INDICATION
     Route: 065
  3. HUMIRA [Suspect]
     Active Substance: ADALIMUMAB
     Indication: COLITIS ULCERATIVE
     Route: 058
  4. 5-ASA [Suspect]
     Active Substance: MESALAMINE
     Indication: PRODUCT USED FOR UNKNOWN INDICATION
     Route: 065

REACTIONS (13)
  - Abdominal pain [Unknown]
  - Gastrointestinal disorder [Unknown]
  - Gastrointestinal haemorrhage [Unknown]
  - Drug specific antibody present [Unknown]
  - Drug ineffective [Unknown]
  - Colitis ulcerative [Not Recovered/Not Resolved]
  - Insomnia [Unknown]
  - Gastrointestinal haemorrhage [Recovered/Resolved]
  - Malnutrition [Unknown]
  - Asthenia [Unknown]
  - Anger [Unknown]
  - Diarrhoea haemorrhagic [Unknown]
  - Fatigue [Unknown]

NARRATIVE: CASE EVENT DATE: 2015
